FAERS Safety Report 6573691-7 (Version None)
Quarter: 2010Q1

REPORT INFORMATION
  Report Type: 
  Country: None (occurrence: None)
  Receive Date: 20100208
  Receipt Date: 20100201
  Transmission Date: 20100710
  Serious: Yes (Death)
  Sender: FDA-Public Use
  Company Number: DK-SANOFI-AVENTIS-2010SA004422

PATIENT
  Age: 59 Year
  Sex: Female
  Weight: 69 kg

DRUGS (6)
  1. OXALIPLATIN [Suspect]
     Indication: COLON CANCER
     Dosage: DF
     Dates: start: 20100104, end: 20100106
  2. AVASTIN [Suspect]
     Indication: COLON CANCER
     Dosage: DF
     Route: 042
     Dates: start: 20100104, end: 20100106
  3. XELODA [Suspect]
     Indication: COLON CANCER
     Dates: start: 20100104, end: 20100106
  4. METOPROLOL TARTRATE [Concomitant]
     Indication: HYPERTENSION
     Route: 065
     Dates: end: 20100106
  5. AMLODIPINE [Concomitant]
     Indication: HYPERTENSION
     Route: 065
     Dates: end: 20100106
  6. CORODIL [Concomitant]
     Indication: HYPERTENSION
     Dosage: DF
     Route: 048
     Dates: end: 20100106

REACTIONS (1)
  - CARDIAC ARREST [None]
